FAERS Safety Report 18873272 (Version 3)
Quarter: 2021Q2

REPORT INFORMATION
  Report Type: Spontaneous
  Country: US (occurrence: US)
  Receive Date: 20210210
  Receipt Date: 20210616
  Transmission Date: 20210717
  Serious: Yes (Other)
  Sender: FDA-Public Use
  Company Number: US-PFIZER INC-2021116695

PATIENT
  Age: 67 Year
  Sex: Female
  Weight: 63.5 kg

DRUGS (1)
  1. PREMARIN [Suspect]
     Active Substance: ESTROGENS, CONJUGATED
     Indication: PROPHYLAXIS URINARY TRACT INFECTION
     Dosage: 0.5 G, 2X/WEEK
     Route: 067

REACTIONS (4)
  - Sensitivity to weather change [Unknown]
  - Pain [Unknown]
  - Neoplasm malignant [Unknown]
  - Drug effective for unapproved indication [Unknown]
